FAERS Safety Report 25069685 (Version 4)
Quarter: 2025Q2

REPORT INFORMATION
  Report Type: Spontaneous
  Country: BR (occurrence: BR)
  Receive Date: 20250312
  Receipt Date: 20250414
  Transmission Date: 20250716
  Serious: Yes (Other)
  Sender: AMGEN
  Company Number: BR-AMGEN-BRASP2025046332

PATIENT
  Age: 61 Year
  Sex: Female

DRUGS (2)
  1. REPATHA [Suspect]
     Active Substance: EVOLOCUMAB
     Indication: Type IIa hyperlipidaemia
     Dosage: UNK, Q2WK
     Route: 065
  2. REPATHA [Suspect]
     Active Substance: EVOLOCUMAB
     Indication: Blood cholesterol increased
     Dosage: UNK, Q2WK
     Route: 065

REACTIONS (7)
  - Coronary artery occlusion [Unknown]
  - Carotid endarterectomy [Unknown]
  - Drug dose omission by device [Unknown]
  - Device difficult to use [Unknown]
  - Adverse event [Unknown]
  - Malaise [Unknown]
  - Skin discolouration [Unknown]
